FAERS Safety Report 6392555-5 (Version None)
Quarter: 2009Q4

REPORT INFORMATION
  Report Type: 
  Country: None (occurrence: None)
  Receive Date: 20091007
  Receipt Date: 20090925
  Transmission Date: 20100525
  Serious: Yes (Death)
  Sender: FDA-Public Use
  Company Number: US-JNJCH-2009025989

PATIENT
  Age: 47 Year
  Sex: Female

DRUGS (1)
  1. ASPIRIN [Suspect]
     Indication: MIGRAINE
     Dosage: TEXT:UNSPECIFIED
     Route: 048

REACTIONS (5)
  - BRAIN OEDEMA [None]
  - CEREBRAL HAEMORRHAGE [None]
  - COMA [None]
  - MYOCARDIAL INFARCTION [None]
  - THERAPEUTIC AGENT TOXICITY [None]
